FAERS Safety Report 10428255 (Version 4)
Quarter: 2014Q4

REPORT INFORMATION
  Report Type: Report from Study
  Country: CH (occurrence: CH)
  Receive Date: 20140903
  Receipt Date: 20141103
  Transmission Date: 20150528
  Serious: Yes (Death)
  Sender: FDA-Public Use
  Company Number: CH-BAYER-2014-101969

PATIENT
  Age: 72 Year
  Sex: Male
  Weight: 81.5 kg

DRUGS (6)
  1. RADIUM-223 DICHLORIDE [Suspect]
     Active Substance: RADIUM RA-223 DICHLORIDE
     Indication: PROSTATE CANCER
     Dosage: 4.25 MBQ, ONCE
     Route: 042
     Dates: start: 20140212, end: 20140212
  2. RADIUM-223 DICHLORIDE [Suspect]
     Active Substance: RADIUM RA-223 DICHLORIDE
     Indication: PROSTATE CANCER
     Dosage: 4.25 MBQ, ONCE
     Route: 042
     Dates: start: 20140116, end: 20140116
  3. RADIUM-223 DICHLORIDE [Suspect]
     Active Substance: RADIUM RA-223 DICHLORIDE
     Indication: PROSTATE CANCER
     Dosage: 4.25 MBQ, ONCE
     Route: 042
     Dates: start: 20140312, end: 20140312
  4. RADIUM-223 DICHLORIDE [Suspect]
     Active Substance: RADIUM RA-223 DICHLORIDE
     Indication: PROSTATE CANCER
     Dosage: 4.25 MBQ, ONCE
     Route: 042
     Dates: start: 20131023, end: 20131023
  5. RADIUM-223 DICHLORIDE [Suspect]
     Active Substance: RADIUM RA-223 DICHLORIDE
     Indication: METASTASES TO BONE
     Dosage: 4.25 MBQ, ONCE
     Route: 042
     Dates: start: 20131119, end: 20131119
  6. RADIUM-223 DICHLORIDE [Suspect]
     Active Substance: RADIUM RA-223 DICHLORIDE
     Indication: PROSTATE CANCER
     Dosage: 4.25 MBQ, ONCE
     Route: 042
     Dates: start: 20131218, end: 20131218

REACTIONS (2)
  - Anaemia [Fatal]
  - Anaemia [Unknown]

NARRATIVE: CASE EVENT DATE: 20140312
